FAERS Safety Report 22181837 (Version 4)
Quarter: 2023Q2

REPORT INFORMATION
  Report Type: Spontaneous
  Country: US (occurrence: US)
  Receive Date: 20230406
  Receipt Date: 20230512
  Transmission Date: 20230722
  Serious: Yes (Other)
  Sender: FDA-Public Use
  Company Number: US-PFIZER INC-PV202300061611

PATIENT
  Age: 86 Year
  Sex: Female
  Weight: 65.77 kg

DRUGS (1)
  1. IBRANCE [Suspect]
     Active Substance: PALBOCICLIB
     Indication: Colon cancer
     Dosage: 125 MG, CYCLIC (TAKE 1 TABLET EVERY DAY FOR 21 DAYS ON, THEN 7 DAYS OFF; WITH OR WITHOUT FOOD)
     Route: 048

REACTIONS (8)
  - Cataract [Unknown]
  - Neoplasm progression [Unknown]
  - Off label use [Unknown]
  - Fatigue [Unknown]
  - Dry skin [Unknown]
  - Lymphadenopathy [Unknown]
  - Peripheral swelling [Unknown]
  - White blood cell count decreased [Unknown]
